FAERS Safety Report 7251280-9 (Version None)
Quarter: 2011Q1

REPORT INFORMATION
  Report Type: 
  Country: None (occurrence: None)
  Receive Date: 20110128
  Receipt Date: 20101118
  Transmission Date: 20110831
  Serious: Yes (Other)
  Sender: FDA-Public Use
  Company Number: US-BAYER-201033607NA

PATIENT
  Sex: Female
  Weight: 88.889 kg

DRUGS (16)
  1. YASMIN [Suspect]
     Indication: ACNE
  2. BENZOYL PEROXIDE [Concomitant]
  3. MORPHINE [Concomitant]
  4. YASMIN [Suspect]
     Indication: CONTRACEPTION
     Route: 048
     Dates: start: 20060101, end: 20070901
  5. ALBUTEROL [Concomitant]
     Dosage: UNK
     Dates: start: 20020101
  6. NUVARING [Concomitant]
     Dosage: UNK
     Dates: start: 20070901, end: 20080101
  7. MIRENA [Concomitant]
     Dosage: UNK
     Dates: start: 20080118
  8. ZOFRAN [Concomitant]
  9. ADVAIR [Concomitant]
     Dosage: UNK
     Dates: start: 20050101
  10. DIFFERIN [Concomitant]
     Dosage: UNK
     Route: 061
     Dates: start: 20090113
  11. OXYCODONE HCL AND ACETAMINOPHEN [Concomitant]
     Dosage: UNK
     Route: 048
     Dates: start: 20090128
  12. RETIN-A [Concomitant]
  13. VITAMIN D [Concomitant]
     Dosage: UNK
     Route: 048
     Dates: start: 20090123
  14. ADVAIR [Concomitant]
     Dosage: UNK
     Dates: start: 20020101
  15. ALBUTEROL [Concomitant]
     Dosage: UNK
     Dates: start: 20050101
  16. IBUPROFEN [Concomitant]

REACTIONS (12)
  - CHOLECYSTITIS CHRONIC [None]
  - GALLBLADDER CHOLESTEROLOSIS [None]
  - VOMITING [None]
  - DYSURIA [None]
  - ABDOMINAL PAIN [None]
  - BILIARY COLIC [None]
  - ABDOMINAL PAIN UPPER [None]
  - MUSCLE SPASMS [None]
  - NAUSEA [None]
  - CHOLELITHIASIS [None]
  - POST CHOLECYSTECTOMY SYNDROME [None]
  - DIARRHOEA [None]
